FAERS Safety Report 25859481 (Version 3)
Quarter: 2025Q4

REPORT INFORMATION
  Report Type: Spontaneous
  Country: EU (occurrence: EU)
  Receive Date: 20250929
  Receipt Date: 20251016
  Transmission Date: 20260117
  Serious: Yes (Other)
  Sender: ALEXION PHARMACEUTICALS
  Company Number: EU-AstraZeneca-CH-00953850A

PATIENT
  Age: 46 Year
  Sex: Female

DRUGS (1)
  1. SOLIRIS [Suspect]
     Active Substance: ECULIZUMAB
     Indication: Atypical haemolytic uraemic syndrome
     Dosage: 900 MILLIGRAM

REACTIONS (7)
  - Bronchopulmonary aspergillosis [Unknown]
  - Pseudomembranous colitis [Unknown]
  - Blood creatinine abnormal [Unknown]
  - Tachypnoea [Unknown]
  - Platelet disorder [Unknown]
  - Dyspnoea [Unknown]
  - Lung opacity [Unknown]
